FAERS Safety Report 5090122-7 (Version None)
Quarter: 2006Q3

REPORT INFORMATION
  Report Type: 
  Country: None (occurrence: None)
  Receive Date: 20060828
  Receipt Date: 20060718
  Transmission Date: 20061208
  Serious: Yes (Hospitalization)
  Sender: FDA-Public Use
  Company Number: JP-MERCK-0608USA01579

PATIENT
  Age: 53 Year
  Sex: Female
  Weight: 47 kg

DRUGS (14)
  1. RYTHMODAN [Suspect]
     Indication: SUPRAVENTRICULAR TACHYCARDIA
     Route: 048
     Dates: start: 20000922, end: 20001111
  2. FERROMIA [Concomitant]
     Indication: IRON DEFICIENCY
     Route: 048
  3. KREMEZIN [Concomitant]
     Indication: AZOTAEMIA
     Route: 048
  4. CARDENALIN [Concomitant]
     Indication: HYPERTENSION
     Route: 048
     Dates: start: 20000817
  5. ADALAT [Concomitant]
     Indication: HYPERTENSION
     Route: 048
     Dates: start: 20000821
  6. DEPAS [Concomitant]
     Indication: HYPERTENSION
     Route: 048
     Dates: start: 20000817
  7. COZAAR [Suspect]
     Indication: HYPERTENSION
     Route: 048
     Dates: start: 20000821
  8. CALCIUM CARBONATE [Concomitant]
     Indication: HYPERPHOSPHATAEMIA
     Route: 048
     Dates: start: 20000817
  9. BUFFERIN [Concomitant]
     Indication: THROMBOSIS PROPHYLAXIS
     Route: 048
     Dates: start: 20000817
  10. ISOSORBIDE MONONITRATE [Concomitant]
     Indication: ACUTE MYOCARDIAL INFARCTION
     Route: 048
     Dates: start: 20000817
  11. UNIPHYL [Concomitant]
     Indication: ASTHMA
     Route: 048
     Dates: start: 20000821
  12. ROCALTROL [Concomitant]
     Indication: RENAL OSTEODYSTROPHY
     Route: 048
     Dates: start: 20001109
  13. [THERAPY UNSPECIFIED] [Concomitant]
     Indication: HYPERTENSION
     Route: 048
     Dates: start: 20001013
  14. WARFARIN [Concomitant]
     Indication: RETINAL VEIN OCCLUSION
     Route: 048
     Dates: start: 20001101

REACTIONS (2)
  - HYPOGLYCAEMIA [None]
  - RENAL DISORDER [None]
